FAERS Safety Report 15890705 (Version 1)
Quarter: 2019Q1

REPORT INFORMATION
  Report Type: Spontaneous
  Country: JP (occurrence: JP)
  Receive Date: 20190130
  Receipt Date: 20190130
  Transmission Date: 20190417
  Serious: Yes (Other)
  Sender: FDA-Public Use
  Company Number: JP-PFIZER INC-2019037016

PATIENT
  Age: 80 Year
  Sex: Male

DRUGS (1)
  1. LYRICA [Suspect]
     Active Substance: PREGABALIN
     Indication: SPINAL COLUMN STENOSIS
     Dosage: 2 TABLET, 1X/DAY AFTER BERAKFAST
     Route: 048

REACTIONS (7)
  - Loss of consciousness [Unknown]
  - Delirium [Unknown]
  - Wound haemorrhage [Unknown]
  - Road traffic accident [Unknown]
  - Contusion [Unknown]
  - Drug effect delayed [Unknown]
  - Somnolence [Unknown]

NARRATIVE: CASE EVENT DATE: 20180923
